FAERS Safety Report 20348084 (Version 1)
Quarter: 2022Q1

REPORT INFORMATION
  Report Type: Spontaneous
  Country: US (occurrence: US)
  Receive Date: 20220118
  Receipt Date: 20220118
  Transmission Date: 20220423
  Serious: Yes (Other)
  Sender: FDA-Public Use
  Company Number: US-BEH-2022140710

PATIENT
  Age: 62 Year
  Sex: Female

DRUGS (2)
  1. HIZENTRA [Suspect]
     Active Substance: HUMAN IMMUNOGLOBULIN G
     Indication: Immunodeficiency common variable
     Dosage: 14 MILLILITER, BIW, VIA 4 SITES IN ABDOMEN
     Route: 058
     Dates: start: 20220106
  2. HIZENTRA [Suspect]
     Active Substance: HUMAN IMMUNOGLOBULIN G
     Dosage: 14 MILLILITER, VIA 4 SITES IN ABDOMEN
     Route: 058
     Dates: start: 20220106

REACTIONS (5)
  - Deep vein thrombosis [Unknown]
  - Erythema [Unknown]
  - Peripheral swelling [Unknown]
  - Skin discolouration [Unknown]
  - Vasodilatation [Unknown]

NARRATIVE: CASE EVENT DATE: 20220109
